FAERS Safety Report 12154156 (Version 1)
Quarter: 2016Q1

REPORT INFORMATION
  Report Type: Spontaneous
  Country: US (occurrence: US)
  Receive Date: 20160307
  Receipt Date: 20160307
  Transmission Date: 20160526
  Serious: Yes (Other)
  Sender: FDA-Public Use
  Company Number: US-TEVA-640368USA

PATIENT
  Age: 52 Year
  Sex: Female

DRUGS (7)
  1. METHYLPREDNISOLONE. [Interacting]
     Active Substance: METHYLPREDNISOLONE
     Indication: SKIN INFECTION
     Route: 065
  2. RIFAMPICIN [Interacting]
     Active Substance: RIFAMPIN
     Indication: SKIN INFECTION
     Route: 065
  3. RIFABUTIN. [Concomitant]
     Active Substance: RIFABUTIN
     Indication: SKIN INFECTION
     Route: 065
  4. CLARITHROMYCIN. [Suspect]
     Active Substance: CLARITHROMYCIN
     Indication: SKIN INFECTION
     Route: 065
  5. AMIKACIN [Suspect]
     Active Substance: AMIKACIN
     Indication: SKIN INFECTION
     Dosage: FIVE TIMES WEEKLY WAS
     Route: 042
  6. DOXYCYCLINE. [Suspect]
     Active Substance: DOXYCYCLINE
     Indication: SKIN INFECTION
     Route: 065
  7. AZITHROMYCIN ANHYDROUS. [Concomitant]
     Active Substance: AZITHROMYCIN ANHYDROUS
     Indication: SKIN INFECTION
     Route: 065

REACTIONS (6)
  - Nausea [Unknown]
  - Systemic lupus erythematosus [Unknown]
  - Vomiting [Unknown]
  - Adrenocortical insufficiency acute [Unknown]
  - Ototoxicity [Unknown]
  - Drug interaction [Unknown]
